FAERS Safety Report 10973634 (Version 1)
Quarter: 2015Q1

REPORT INFORMATION
  Report Type: Spontaneous
  Country: US (occurrence: None)
  Receive Date: 20150331
  Receipt Date: 20150331
  Transmission Date: 20150721
  Serious: Yes (Disabling)
  Sender: FDA-Public Use
  Company Number: None

PATIENT
  Age: 33 Year
  Sex: Female
  Weight: 83.92 kg

DRUGS (3)
  1. MULTIVITAMIN [Concomitant]
     Active Substance: VITAMINS
  2. EAR WAX KIT WELL AT WALGREENS [Suspect]
     Active Substance: CARBAMIDE PEROXIDE
     Indication: CERUMEN REMOVAL
     Dates: start: 20141006
  3. ORTHRO TRICYCLEN LO [Concomitant]

REACTIONS (3)
  - Tinnitus [None]
  - Vertigo [None]
  - Deafness neurosensory [None]

NARRATIVE: CASE EVENT DATE: 20141006
